FAERS Safety Report 4587948-2 (Version None)
Quarter: 2005Q1

REPORT INFORMATION
  Report Type: 
  Country: None (occurrence: None)
  Receive Date: 20050214
  Receipt Date: 20030422
  Transmission Date: 20050727
  Serious: Yes (Hospitalization)
  Sender: FDA-Public Use
  Company Number: 5238

PATIENT
  Age: 61 Year
  Sex: Male

DRUGS (2)
  1. PAMIDRONATE DISODIUM [Suspect]
     Indication: HYPERCALCAEMIA
  2. DIURETICS [Concomitant]

REACTIONS (5)
  - ASTHENIA [None]
  - BLOOD LACTATE DEHYDROGENASE INCREASED [None]
  - BLOOD PARATHYROID HORMONE DECREASED [None]
  - CONDITION AGGRAVATED [None]
  - HYPERCALCAEMIA [None]
